FAERS Safety Report 7092872-X (Version None)
Quarter: 2010Q4

REPORT INFORMATION
  Report Type: 
  Country: None (occurrence: None)
  Receive Date: 20101110
  Receipt Date: 20101104
  Transmission Date: 20110411
  Serious: No
  Sender: FDA-Public Use
  Company Number: US-PFIZER INC-2010140857

PATIENT
  Sex: Female

DRUGS (14)
  1. NORVASC [Suspect]
  2. LOSARTAN [Suspect]
  3. DIOVAN HCT [Concomitant]
  4. LISINOPRIL [Concomitant]
  5. BENICAR HCT [Concomitant]
  6. RANITIDINE [Concomitant]
  7. ZOLPIDEM [Concomitant]
  8. CLONAZEPAM [Concomitant]
  9. ALLOPURINOL [Concomitant]
  10. LORAZEPAM [Concomitant]
  11. GABAPENTIN [Concomitant]
  12. DARVOCET [Concomitant]
  13. PREMARIN [Concomitant]
  14. PHENAZOPYRIDINE [Concomitant]

REACTIONS (4)
  - HYPERHIDROSIS [None]
  - IRRITABILITY [None]
  - MALAISE [None]
  - NERVOUSNESS [None]
